FAERS Safety Report 5735458-9 (Version None)
Quarter: 2008Q2

REPORT INFORMATION
  Report Type: 
  Country: None (occurrence: None)
  Receive Date: 20080512
  Receipt Date: 20080502
  Transmission Date: 20081010
  Serious: Yes (Hospitalization, Other)
  Sender: FDA-Public Use
  Company Number: FR-ABBOTT-07P-056-0431259-00

PATIENT
  Sex: Male

DRUGS (12)
  1. ALLOPURINOL [Suspect]
     Indication: GOUT
     Route: 048
     Dates: start: 20050101, end: 20070701
  2. VERCYTE [Suspect]
     Indication: POLYCYTHAEMIA VERA
     Route: 048
     Dates: start: 20050101
  3. VERAPAMIL [Suspect]
     Indication: HYPERTENSION
     Route: 048
     Dates: start: 19970101
  4. METHYCLOTHIAZIDE/TRIAMTERENE [Suspect]
     Indication: HYPERTENSION
     Route: 048
     Dates: start: 20070301, end: 20070810
  5. ESOMEPRAZOLE [Suspect]
     Indication: DRUG USE FOR UNKNOWN INDICATION
     Route: 048
     Dates: start: 20050101
  6. DESLORATADINE [Suspect]
     Indication: HYPERSENSITIVITY
     Route: 048
  7. FLECAINIDE ACETATE [Suspect]
     Indication: RESPIRATORY DISORDER
     Route: 048
     Dates: start: 19970101
  8. ACETYLSALICYLATE LYSINE [Suspect]
     Indication: PLATELET AGGREGATION
     Route: 048
     Dates: start: 20050101
  9. ACETAMINOPHEN [Concomitant]
     Indication: PAIN
     Route: 048
  10. SODIUM ALGINATE [Concomitant]
     Indication: DRUG USE FOR UNKNOWN INDICATION
     Route: 048
  11. SODIUM BICARBONATE [Concomitant]
     Indication: DRUG USE FOR UNKNOWN INDICATION
     Route: 048
  12. CALCIUM CARBONATE [Concomitant]
     Indication: DRUG USE FOR UNKNOWN INDICATION
     Route: 048

REACTIONS (6)
  - ECZEMA [None]
  - LICHENOID KERATOSIS [None]
  - PRURIGO [None]
  - PRURITUS [None]
  - PSORIASIS [None]
  - TOXIC SKIN ERUPTION [None]
